FAERS Safety Report 18685122 (Version 2)
Quarter: 2021Q1

REPORT INFORMATION
  Report Type: Spontaneous
  Country: US (occurrence: US)
  Receive Date: 20201230
  Receipt Date: 20210106
  Transmission Date: 20210419
  Serious: No
  Sender: FDA-Public Use
  Company Number: US-009507513-2012USA006136

PATIENT
  Sex: Female

DRUGS (1)
  1. INTRON A [Suspect]
     Active Substance: INTERFERON ALFA-2B
     Indication: CUTANEOUS T-CELL LYMPHOMA
     Dosage: INJECTION 0.5 ML (3 MILLION UNITS) 3 TIMES A WEEK
     Route: 058
     Dates: start: 20200214

REACTIONS (1)
  - Product dose omission issue [Unknown]
